FAERS Safety Report 25902902 (Version 1)
Quarter: 2025Q4

REPORT INFORMATION
  Report Type: Spontaneous
  Country: US (occurrence: US)
  Receive Date: 20251009
  Receipt Date: 20251009
  Transmission Date: 20260117
  Serious: No
  Sender: CB FLEET
  Company Number: US-PRESTIGE-202506-US-001629

PATIENT
  Sex: Female

DRUGS (1)
  1. MONISTAT 1 COMBINATION PACK [Suspect]
     Active Substance: MICONAZOLE NITRATE
     Indication: Fungal infection
     Dosage: UNKNOWN
     Route: 067

REACTIONS (5)
  - Vulvovaginal pain [Unknown]
  - Vulvovaginal discomfort [Unknown]
  - Vulvovaginal burning sensation [Unknown]
  - Chemical burn of genitalia [Unknown]
  - Genital blister [Unknown]
